FAERS Safety Report 18471849 (Version 5)
Quarter: 2021Q2

REPORT INFORMATION
  Report Type: Report from Study
  Country: US (occurrence: US)
  Receive Date: 20201105
  Receipt Date: 20210629
  Transmission Date: 20210717
  Serious: Yes (Other)
  Sender: FDA-Public Use
  Company Number: US-INCYTE CORPORATION-2020IN009511

PATIENT

DRUGS (2)
  1. JAKAFI [Suspect]
     Active Substance: RUXOLITINIB
     Indication: MYELOFIBROSIS
     Dosage: 20 MILLIGRAM, BID
     Route: 048
     Dates: start: 20200910
  2. JAKAFI [Suspect]
     Active Substance: RUXOLITINIB
     Dosage: 20 MILLIGRAM, BID
     Route: 048

REACTIONS (13)
  - Bell^s palsy [Not Recovered/Not Resolved]
  - Platelet count abnormal [Unknown]
  - Diarrhoea [Not Recovered/Not Resolved]
  - Malaise [Recovering/Resolving]
  - Haemoglobin abnormal [Unknown]
  - Hypoaesthesia [Not Recovered/Not Resolved]
  - Post procedural haemorrhage [Unknown]
  - Blood count abnormal [Unknown]
  - Herpes zoster [Recovered/Resolved]
  - Hiccups [Unknown]
  - Fall [Unknown]
  - White blood cell count abnormal [Unknown]
  - Red blood cell count abnormal [Unknown]

NARRATIVE: CASE EVENT DATE: 20200928
